FAERS Safety Report 23585561 (Version 3)
Quarter: 2024Q1

REPORT INFORMATION
  Report Type: Spontaneous
  Country: FR (occurrence: FR)
  Receive Date: 20240301
  Receipt Date: 20240322
  Transmission Date: 20240410
  Serious: Yes (Other)
  Sender: FDA-Public Use
  Company Number: FR-THERAMEX-2024000181

PATIENT
  Age: 47 Year
  Sex: Female

DRUGS (1)
  1. ESTRADIOL [Suspect]
     Active Substance: ESTRADIOL
     Indication: Menopause
     Route: 065
     Dates: start: 202311

REACTIONS (8)
  - Pain in extremity [Unknown]
  - Pain [Unknown]
  - COVID-19 [Unknown]
  - Guillain-Barre syndrome [Unknown]
  - Arrhythmia [Not Recovered/Not Resolved]
  - Blood pressure fluctuation [Not Recovered/Not Resolved]
  - Hypoaesthesia [Not Recovered/Not Resolved]
  - Paraesthesia [Not Recovered/Not Resolved]

NARRATIVE: CASE EVENT DATE: 20231101
